FAERS Safety Report 10413096 (Version 1)
Quarter: 2014Q2

REPORT INFORMATION
  Report Type: Spontaneous
  Country: US (occurrence: None)
  Receive Date: 20140530
  Receipt Date: 20140530
  Transmission Date: 20141212
  Serious: No
  Sender: FDA-Public Use
  Company Number: 227529

PATIENT
  Age: 38 Year
  Sex: Male

DRUGS (2)
  1. PICATO (INGENOL MEBUTATE) (0.015 %, GEL) [Suspect]
     Indication: PRECANCEROUS CELLS PRESENT
     Dates: start: 20140424
  2. PICATO (INGENOL MEBUTATE) (0.015 %, GEL) [Suspect]
     Indication: NASAL DISORDER
     Dates: start: 20140424

REACTIONS (8)
  - Application site discharge [None]
  - Application site erythema [None]
  - Application site exfoliation [None]
  - Application site exfoliation [None]
  - Application site pain [None]
  - Application site pain [None]
  - Application site vesicles [None]
  - Application site vesicles [None]
